FAERS Safety Report 4451284-5 (Version None)
Quarter: 2004Q3

REPORT INFORMATION
  Report Type: 
  Country: None (occurrence: None)
  Receive Date: 20040915
  Receipt Date: 20040915
  Transmission Date: 20050211
  Serious: Yes (Other)
  Sender: FDA-Public Use
  Company Number: None

PATIENT
  Age: 45 Year
  Sex: Male
  Weight: 76 kg

DRUGS (1)
  1. INVANZ [Suspect]
     Indication: PELVIC ABSCESS
     Dosage: 1GM  Q24 HRS  INTRAVENOUS
     Route: 042
     Dates: start: 20040830, end: 20040830

REACTIONS (2)
  - PRURITUS [None]
  - URTICARIA [None]
